FAERS Safety Report 8806504 (Version 1)
Quarter: 2012Q4

REPORT INFORMATION
  Report Type: Spontaneous
  Country: US (occurrence: None)
  Receive Date: 20120920
  Receipt Date: 20120920
  Transmission Date: 20130627
  Serious: Yes (Other)
  Sender: FDA-Public Use
  Company Number: None

PATIENT
  Age: 68 Year
  Sex: Female

DRUGS (1)
  1. PROCRIT [Suspect]
     Dosage: 60,000 units weekly subq
     Route: 058
     Dates: start: 20120904

REACTIONS (2)
  - Cough [None]
  - Diarrhoea [None]
